FAERS Safety Report 6850957 (Version 2)
Quarter: 2024Q4

REPORT INFORMATION
  Report Type: Spontaneous
  Country: DE (occurrence: DE)
  Receive Date: 20081215
  Receipt Date: 20241003
  Transmission Date: 20250114
  Serious: Yes (Other)
  Sender: SANOFI AVENTIS
  Company Number: DE-AVENTIS-200813191DE

PATIENT
  Age: 35 Year
  Sex: Female

DRUGS (3)
  1. ARAVA [Suspect]
     Active Substance: LEFLUNOMIDE
     Indication: Juvenile idiopathic arthritis
     Dosage: UNK
  2. METHOTREXATE [Concomitant]
     Active Substance: METHOTREXATE
     Indication: Juvenile idiopathic arthritis
  3. CHOLESTYRAMINE [Concomitant]
     Active Substance: CHOLESTYRAMINE

REACTIONS (6)
  - Pre-eclampsia [Unknown]
  - Drug exposure before pregnancy [Unknown]
  - Placental insufficiency [Unknown]
  - Foetal growth restriction [Unknown]
  - Oligohydramnios [Unknown]
  - Foetal distress syndrome [Unknown]
